FAERS Safety Report 9148651 (Version 1)
Quarter: 2013Q1

REPORT INFORMATION
  Report Type: Spontaneous
  Country: US (occurrence: US)
  Receive Date: 20130308
  Receipt Date: 20130308
  Transmission Date: 20140127
  Serious: No
  Sender: FDA-Public Use
  Company Number: US-ENDO PHARMACEUTICALS INC.-OPCR20121929

PATIENT
  Sex: Female
  Weight: 111.23 kg

DRUGS (3)
  1. OPANA ER [Suspect]
     Indication: PAIN
     Route: 048
     Dates: start: 2012, end: 2012
  2. OPANA ER 5 MG [Concomitant]
     Indication: PAIN
     Route: 048
     Dates: end: 2012
  3. TOPAMAX [Concomitant]
     Indication: PRODUCT USED FOR UNKNOWN INDICATION
     Dosage: UNK
     Route: 065

REACTIONS (4)
  - Weight increased [Unknown]
  - Abdominal distension [Unknown]
  - Decreased appetite [Unknown]
  - Drug ineffective [Recovered/Resolved]
